FAERS Safety Report 4726568-3 (Version None)
Quarter: 2005Q3

REPORT INFORMATION
  Report Type: 
  Country: None (occurrence: None)
  Receive Date: 20050727
  Receipt Date: 20050412
  Transmission Date: 20060218
  Serious: Yes (Other)
  Sender: FDA-Public Use
  Company Number: US-MERCK-0504USA02234

PATIENT
  Age: 40 Year
  Sex: Male
  Weight: 80 kg

DRUGS (2)
  1. VIOXX [Suspect]
     Indication: ARTHRITIS
     Route: 048
     Dates: start: 20010215, end: 20030409
  2. VIOXX [Suspect]
     Route: 048
     Dates: start: 20010215, end: 20030409

REACTIONS (4)
  - CEREBROVASCULAR ACCIDENT [None]
  - DEPRESSION [None]
  - INTERVERTEBRAL DISC DEGENERATION [None]
  - POST-TRAUMATIC STRESS DISORDER [None]
